FAERS Safety Report 6740024-2 (Version None)
Quarter: 2010Q2

REPORT INFORMATION
  Report Type: 
  Country: None (occurrence: None)
  Receive Date: 20100525
  Receipt Date: 20100511
  Transmission Date: 20101027
  Serious: Yes (Other)
  Sender: FDA-Public Use
  Company Number: PHHY2010US30165

PATIENT
  Sex: Female

DRUGS (3)
  1. RECLAST [Suspect]
     Dosage: 5 MG
     Route: 042
     Dates: start: 20100429
  2. CALCIUM [Concomitant]
  3. VITAMIN D [Concomitant]

REACTIONS (6)
  - BODY TEMPERATURE INCREASED [None]
  - OROPHARYNGEAL PAIN [None]
  - PAIN [None]
  - PAIN IN EXTREMITY [None]
  - PHARYNGEAL OEDEMA [None]
  - RENAL DISORDER [None]
